FAERS Safety Report 6551615-6 (Version None)
Quarter: 2010Q1

REPORT INFORMATION
  Report Type: 
  Country: None (occurrence: None)
  Receive Date: 20100120
  Receipt Date: 20100108
  Transmission Date: 20100710
  Serious: Yes (Other)
  Sender: FDA-Public Use
  Company Number: 201001009

PATIENT
  Age: 64 Year
  Sex: Female

DRUGS (22)
  1. TESTIM [Suspect]
     Indication: MENOPAUSE
     Dosage: TRANSDERMAL
     Route: 062
     Dates: start: 20060810, end: 20070801
  2. DYAZIDE [Suspect]
     Indication: MENIERE'S DISEASE
     Dates: start: 20030101
  3. ESTALIS (KLIOGEST /00686201/) [Suspect]
     Indication: MENOPAUSE
     Dosage: 14 MG,TRANSDERMAL
     Route: 062
     Dates: start: 20010706, end: 20050801
  4. ESTRADIOL [Suspect]
     Indication: MENOPAUSE
     Dates: start: 19850101, end: 20040923
  5. ESTRATEST H.S. [Suspect]
     Indication: MENOPAUSE
     Dosage: 1.25 MG.
     Dates: start: 20001227, end: 20070801
  6. INDERAL LA [Suspect]
     Indication: CARDIAC DISORDER
     Dates: start: 20030101
  7. INDERAL LA [Suspect]
     Indication: MIGRAINE
     Dates: start: 20030101
  8. MEDROXYPROGESTERONE ACETATE [Suspect]
     Indication: DRUG USE FOR UNKNOWN INDICATION
     Dates: end: 20070326
  9. PROVERA [Suspect]
     Indication: MENOPAUSE
     Dosage: 2.5 MG
     Dates: start: 19850101, end: 20070801
  10. CARDIZEM [Concomitant]
  11. CARISOPRODOL [Concomitant]
  12. ACYCLOVIR [Concomitant]
  13. ASPIRIN [Concomitant]
  14. FENTANYL-100 [Concomitant]
  15. HYDROCODONE (HYDROCODONE) [Concomitant]
  16. LOVASTATIN [Concomitant]
  17. OXYCODONE HCL [Concomitant]
  18. ACETAMINOPHEN [Concomitant]
  19. PROMETHAZINE [Concomitant]
  20. TRAZODONE HCL [Concomitant]
  21. WARFARIN SODIUM [Concomitant]
  22. ORAL CONTACEPTIVE NOS [Concomitant]

REACTIONS (13)
  - ANXIETY [None]
  - BLOOD CHOLESTEROL INCREASED [None]
  - BREAST CANCER [None]
  - BREAST MASS [None]
  - CARDIAC DISORDER [None]
  - CEREBROVASCULAR ACCIDENT [None]
  - DEPRESSION [None]
  - HERPES VIRUS INFECTION [None]
  - MENIERE'S DISEASE [None]
  - MIGRAINE [None]
  - NAUSEA [None]
  - PAIN [None]
  - TREMOR [None]
